FAERS Safety Report 24027915 (Version 1)
Quarter: 2024Q2

REPORT INFORMATION
  Report Type: Report from Study
  Country: US (occurrence: US)
  Receive Date: 20240628
  Receipt Date: 20240628
  Transmission Date: 20240716
  Serious: Yes (Hospitalization)
  Sender: FDA-Public Use
  Company Number: US-TG THERAPEUTICS INC.-TGT003718

PATIENT
  Age: 24 Year
  Sex: Male

DRUGS (2)
  1. UBLITUXIMAB [Suspect]
     Active Substance: UBLITUXIMAB
     Indication: Multiple sclerosis
     Dosage: 150 MILLIGRAM
     Route: 042
     Dates: start: 20231212, end: 20231212
  2. UBLITUXIMAB [Suspect]
     Active Substance: UBLITUXIMAB
     Dosage: 450 MILLIGRAM
     Route: 042
     Dates: start: 20240111, end: 20240111

REACTIONS (3)
  - Multiple sclerosis relapse [Unknown]
  - Fluid imbalance [Unknown]
  - Hypotension [Unknown]

NARRATIVE: CASE EVENT DATE: 20240527
